FAERS Safety Report 6444407-X (Version None)
Quarter: 2009Q4

REPORT INFORMATION
  Report Type: 
  Country: None (occurrence: None)
  Receive Date: 20091118
  Receipt Date: 20091106
  Transmission Date: 20100525
  Serious: Yes (Disabling, Other)
  Sender: FDA-Public Use
  Company Number: US-ELI_LILLY_AND_COMPANY-US200911002225

PATIENT
  Age: 73 Year
  Sex: Female

DRUGS (3)
  1. EVISTA [Suspect]
     Indication: OSTEOPOROSIS
     Dosage: 60 MG, UNKNOWN
     Route: 065
     Dates: start: 20000109, end: 20040101
  2. CALCIUM [Concomitant]
     Dosage: UNK, UNKNOWN
     Route: 065
  3. VITAMINS [Concomitant]
     Dosage: UNK, UNKNOWN
     Route: 065

REACTIONS (10)
  - ASPIRATION [None]
  - ASTHENIA [None]
  - CEREBROVASCULAR ACCIDENT [None]
  - CORONARY ARTERY BYPASS [None]
  - DEPRESSED MOOD [None]
  - GAIT DISTURBANCE [None]
  - MENTAL IMPAIRMENT [None]
  - MYOCARDIAL INFARCTION [None]
  - SPEECH DISORDER [None]
  - THROMBOSIS [None]
